FAERS Safety Report 5904885-9 (Version None)
Quarter: 2008Q4

REPORT INFORMATION
  Report Type: 
  Country: None (occurrence: None)
  Receive Date: 20081001
  Receipt Date: 20080926
  Transmission Date: 20090506
  Serious: Yes (Hospitalization)
  Sender: FDA-Public Use
  Company Number: A0750076A

PATIENT
  Age: 57 Year
  Sex: Male
  Weight: 95.5 kg

DRUGS (9)
  1. AVANDIA [Suspect]
     Indication: DIABETES MELLITUS
     Dosage: 8MG PER DAY
     Route: 048
     Dates: start: 20030222, end: 20061201
  2. METFORMIN HCL [Concomitant]
  3. GLUCOPHAGE [Concomitant]
  4. PRAVASTATIN [Concomitant]
  5. CLONIDINE HCL [Concomitant]
  6. FELODIPINE [Concomitant]
  7. TRICOR [Concomitant]
  8. ATACAND [Concomitant]
  9. ALLOPURINOL [Concomitant]

REACTIONS (1)
  - MYOCARDIAL INFARCTION [None]
